FAERS Safety Report 8131666-0 (Version None)
Quarter: 2012Q1

REPORT INFORMATION
  Report Type: 
  Country: None (occurrence: None)
  Receive Date: 20120207
  Receipt Date: 20120124
  Transmission Date: 20120608
  Serious: Yes (Hospitalization, Disabling, Other)
  Sender: FDA-Public Use
  Company Number: 2012MA001067

PATIENT
  Age: 69 Year
  Sex: Female
  Weight: 98.8842 kg

DRUGS (62)
  1. ACTOS [Concomitant]
  2. CLIDINIUM [Concomitant]
  3. LORAZEPAM [Concomitant]
  4. POTASSIUM CHLORIDE [Concomitant]
  5. CIPROFLOXACIN [Concomitant]
  6. ROCEPHIN [Concomitant]
  7. TORADOL [Concomitant]
  8. XANAX [Concomitant]
  9. ZOVIRAX [Concomitant]
  10. GLUCOPHAGE XR [Concomitant]
  11. DETROL [Concomitant]
  12. METOCLOPRAMIDE [Suspect]
     Indication: GASTROOESOPHAGEAL REFLUX DISEASE
     Dosage: 10 MG; QID; PO
     Route: 048
     Dates: start: 20010608, end: 20070820
  13. HYDROCHLOROTHIAZIDE [Concomitant]
  14. SIMVASTATIN [Concomitant]
  15. CEDAX [Concomitant]
  16. KLONOPRIL [Concomitant]
  17. NORVASC [Concomitant]
  18. SULFAMETHOXAZOLE AND TRIMETHOPRIM [Concomitant]
  19. BYSTOLIC [Concomitant]
  20. HYCODAN [Concomitant]
  21. LEVSIN [Concomitant]
  22. PRONESTYL [Concomitant]
  23. CHLORDIAZEPOXIDE [Concomitant]
  24. SUCRALFATE [Concomitant]
  25. AMLODIPINE [Concomitant]
  26. ANTIVERT [Concomitant]
  27. COGENTIN [Concomitant]
  28. IRON [Concomitant]
  29. LEVAQUIN [Concomitant]
  30. NEXIUM [Concomitant]
  31. SEPTRA [Concomitant]
  32. UROGESIC [Concomitant]
  33. ZESTORETIC [Concomitant]
  34. ZITHROMIX [Concomitant]
  35. ERY-TAB [Concomitant]
  36. METFORMIN HCL [Concomitant]
  37. ATENOLOL [Concomitant]
  38. BACTROBAN [Concomitant]
  39. COREG [Concomitant]
  40. DEPO-MEDROL [Concomitant]
  41. ENDAL [Concomitant]
  42. FLAGYL [Concomitant]
  43. FLONASE [Concomitant]
  44. LAMISIL [Concomitant]
  45. ZOLOFT [Concomitant]
  46. AMOXIL [Concomitant]
  47. LISINOPRIL [Concomitant]
  48. PREVACID [Concomitant]
  49. ASPIRIN [Concomitant]
  50. PREDNISONE [Concomitant]
  51. PROTONIX [Concomitant]
  52. SERTRALINE HYDROCHLORIDE [Concomitant]
  53. WELCHOL [Concomitant]
  54. CARAFATE [Concomitant]
  55. CELEBREX [Concomitant]
  56. DECARDEN [Concomitant]
  57. ELAVIL [Concomitant]
  58. FLEXERIL [Concomitant]
  59. HISTINEX [Concomitant]
  60. LINCOCIN [Concomitant]
  61. OMEPRAZOLE [Concomitant]
  62. PANCOF [Concomitant]

REACTIONS (78)
  - TARDIVE DYSKINESIA [None]
  - HYPERTENSION [None]
  - UPPER RESPIRATORY TRACT INFECTION [None]
  - URINARY TRACT INFECTION [None]
  - CEREBROVASCULAR ACCIDENT [None]
  - VESTIBULITIS [None]
  - MALNUTRITION [None]
  - MUSCULOSKELETAL PAIN [None]
  - DECREASED APPETITE [None]
  - MUSCLE SPASMS [None]
  - INSOMNIA [None]
  - ANXIETY [None]
  - PHARYNGITIS [None]
  - CORONARY ARTERY DISEASE [None]
  - DEHYDRATION [None]
  - TOOTHACHE [None]
  - HAEMORRHOIDS [None]
  - GASTROINTESTINAL HAEMORRHAGE [None]
  - HYPERHIDROSIS [None]
  - NERVOUSNESS [None]
  - FUNGAL INFECTION [None]
  - AMNESIA [None]
  - DRY MOUTH [None]
  - EXTRAOCULAR MUSCLE PARESIS [None]
  - SYNCOPE [None]
  - ELECTROCARDIOGRAM ST SEGMENT DEPRESSION [None]
  - MUSCULAR WEAKNESS [None]
  - MITRAL VALVE INCOMPETENCE [None]
  - GASTROOESOPHAGEAL REFLUX DISEASE [None]
  - GASTROENTERITIS [None]
  - ABDOMINAL DISCOMFORT [None]
  - TOOTH EXTRACTION [None]
  - BRONCHITIS [None]
  - CARDIAC DISORDER [None]
  - SINUSITIS [None]
  - COUGH [None]
  - FEELING ABNORMAL [None]
  - NASAL CONGESTION [None]
  - BALANCE DISORDER [None]
  - RENAL FUNCTION TEST ABNORMAL [None]
  - BRADYCARDIA [None]
  - URINARY INCONTINENCE [None]
  - MICTURITION URGENCY [None]
  - GAIT DISTURBANCE [None]
  - DYSKINESIA [None]
  - CELLULITIS [None]
  - HALLUCINATION [None]
  - OTITIS MEDIA ACUTE [None]
  - OBESITY [None]
  - ABDOMINAL PAIN [None]
  - EAR PAIN [None]
  - DIZZINESS [None]
  - PARAESTHESIA [None]
  - DIARRHOEA [None]
  - CARDIAC FLUTTER [None]
  - ABDOMINAL DISTENSION [None]
  - MALAISE [None]
  - DYSURIA [None]
  - CHEST PAIN [None]
  - MUSCULOSKELETAL CHEST PAIN [None]
  - PAIN [None]
  - GASTRIC ULCER [None]
  - BREAST ABSCESS [None]
  - FALL [None]
  - DERMAL CYST [None]
  - BLINDNESS UNILATERAL [None]
  - IRON DEFICIENCY ANAEMIA [None]
  - CLOSTRIDIUM DIFFICILE COLITIS [None]
  - ARTHRITIS [None]
  - NAUSEA [None]
  - DYSPNOEA [None]
  - DEPRESSION [None]
  - BACK PAIN [None]
  - VERTIGO [None]
  - TREATMENT NONCOMPLIANCE [None]
  - HEADACHE [None]
  - FATIGUE [None]
  - ATAXIA [None]
